FAERS Safety Report 23919861 (Version 1)
Quarter: 2024Q2

REPORT INFORMATION
  Report Type: Spontaneous
  Country: US (occurrence: None)
  Receive Date: 20240529
  Receipt Date: 20240529
  Transmission Date: 20240715
  Serious: Yes (Other)
  Sender: FDA-Public Use
  Company Number: None

PATIENT
  Sex: Male

DRUGS (11)
  1. SIMPONI ARIA [Suspect]
     Active Substance: GOLIMUMAB
     Indication: Psoriatic arthropathy
     Dosage: FREQ: INJECT 16.5 ML (206.25 MG TOTAL) INTO A CATHETER IN A VEIN EVERY 8 WEEKS
     Route: 042
  2. ALPRAZOLAM [Concomitant]
     Active Substance: ALPRAZOLAM
  3. AMLODIPINE [Concomitant]
     Active Substance: AMLODIPINE BESYLATE
  4. ATORVASTATIN [Concomitant]
     Active Substance: ATORVASTATIN
  5. FISH OIL CAP [Concomitant]
  6. FOLIC ACID TAB [Concomitant]
  7. LEVOTHYROXIN TAB [Concomitant]
  8. LISINOPRIL [Concomitant]
     Active Substance: LISINOPRIL
  9. METHOTREXATE [Concomitant]
     Active Substance: METHOTREXATE
  10. METHOTREXATE [Concomitant]
     Active Substance: METHOTREXATE
     Dosage: OTHER QUANTITY : 50MG/2ML;?
  11. VITAMINS [Concomitant]
     Active Substance: VITAMINS
     Dosage: FREQUENCY : DAILY;?

REACTIONS (1)
  - Retinal detachment [None]
